FAERS Safety Report 15493149 (Version 5)
Quarter: 2019Q1

REPORT INFORMATION
  Report Type: Spontaneous
  Country: US (occurrence: US)
  Receive Date: 20181012
  Receipt Date: 20190225
  Transmission Date: 20190417
  Serious: Yes (Hospitalization)
  Sender: FDA-Public Use
  Company Number: PHEH2018US040091

PATIENT
  Age: 67 Year
  Sex: Male

DRUGS (3)
  1. LENVATINIB [Suspect]
     Active Substance: LENVATINIB
     Indication: RENAL CANCER
     Dosage: 18 MG, QD
     Route: 048
  2. AFINITOR [Suspect]
     Active Substance: EVEROLIMUS
     Indication: RENAL CANCER
     Dosage: UNK
     Route: 065
  3. LENVATINIB [Suspect]
     Active Substance: LENVATINIB
     Dosage: 10 MG, QD
     Route: 048

REACTIONS (12)
  - Weight decreased [Recovering/Resolving]
  - Cough [Recovering/Resolving]
  - Diarrhoea [Recovered/Resolved]
  - Somnolence [Recovering/Resolving]
  - Feeding disorder [Recovering/Resolving]
  - Vomiting [Recovering/Resolving]
  - Hypercalcaemia [Recovering/Resolving]
  - Dehydration [Recovered/Resolved]
  - Asthenia [Recovering/Resolving]
  - Haemoglobin decreased [Recovered/Resolved]
  - Tremor [Recovering/Resolving]
  - Hypertension [Recovering/Resolving]

NARRATIVE: CASE EVENT DATE: 201808
